FAERS Safety Report 8286395 (Version 5)
Quarter: 2024Q2

REPORT INFORMATION
  Report Type: Spontaneous
  Country: US (occurrence: US)
  Receive Date: 20111213
  Receipt Date: 20240425
  Transmission Date: 20240715
  Serious: Yes (Hospitalization, Disabling)
  Sender: FDA-Public Use
  Company Number: US-BAYER-2011-117085

PATIENT
  Age: 24 Year
  Sex: Female
  Weight: 68.027 kg

DRUGS (3)
  1. YAZ [Suspect]
     Active Substance: DROSPIRENONE\ETHINYL ESTRADIOL
     Indication: Menstruation irregular
     Dosage: UNK UNK, QD
     Dates: start: 20080617, end: 20100629
  2. GIANVI [Suspect]
     Active Substance: DROSPIRENONE\ETHINYL ESTRADIOL
     Indication: Menstruation irregular
     Dosage: UNK UNK, QD
     Dates: start: 20100630, end: 20110829
  3. MINERALS\VITAMINS [Concomitant]
     Active Substance: MINERALS\VITAMINS
     Dosage: UNK
     Dates: start: 2011, end: 2012

REACTIONS (7)
  - Pulmonary embolism [None]
  - Chest pain [None]
  - Dyspnoea [None]
  - Injury [None]
  - Back pain [None]
  - Anxiety [None]
  - Deformity [None]

NARRATIVE: CASE EVENT DATE: 20110829
